FAERS Safety Report 9006071 (Version 1)
Quarter: 2013Q1

REPORT INFORMATION
  Report Type: Spontaneous
  Country: CZ (occurrence: CZ)
  Receive Date: 20130109
  Receipt Date: 20130109
  Transmission Date: 20140127
  Serious: Yes (Other)
  Sender: FDA-Public Use
  Company Number: PHHY2013CZ001923

PATIENT
  Sex: Female

DRUGS (2)
  1. KETONAL [Suspect]
     Indication: PAIN
     Dosage: UNK
     Dates: start: 20080227, end: 20080310
  2. LOSARTAN [Concomitant]

REACTIONS (8)
  - Thrombosis [Unknown]
  - Spinal disorder [Unknown]
  - Epistaxis [Unknown]
  - Haematoma [Unknown]
  - Gait disturbance [Unknown]
  - Arthralgia [Unknown]
  - Grip strength decreased [Unknown]
  - General physical health deterioration [Unknown]
